FAERS Safety Report 16294784 (Version 2)
Quarter: 2019Q3

REPORT INFORMATION
  Report Type: Spontaneous
  Country: US (occurrence: US)
  Receive Date: 20190509
  Receipt Date: 20190816
  Transmission Date: 20191004
  Serious: Yes (Other)
  Sender: FDA-Public Use
  Company Number: US-009507513-1904USA013390

PATIENT
  Sex: Male
  Weight: 83.46 kg

DRUGS (5)
  1. ATORVASTATIN [Concomitant]
     Active Substance: ATORVASTATIN
     Indication: CARDIOMEGALY
     Dosage: ONCE A DAY
     Route: 048
  2. PRINIVIL [Suspect]
     Active Substance: LISINOPRIL
     Dosage: HE TOOK 0.25 (UNITS NOT REPORTED) OR 2.5 (UNITS NOT REPORTED) SOMETHING LIKE THAT, OR IT MIGHT BE 0.
     Route: 048
  3. CARVEDILOL. [Concomitant]
     Active Substance: CARVEDILOL
     Dosage: TWICE A DAY
  4. CARVEDILOL. [Concomitant]
     Active Substance: CARVEDILOL
     Indication: CARDIAC DISORDER
     Dosage: ONCE A DAY
  5. CHANTIX [Suspect]
     Active Substance: VARENICLINE TARTRATE
     Indication: TOBACCO USER
     Dosage: UNK
     Route: 048

REACTIONS (3)
  - Hypotension [Unknown]
  - Intracranial aneurysm [Unknown]
  - Loss of consciousness [Unknown]

NARRATIVE: CASE EVENT DATE: 2013
